FAERS Safety Report 6822097-1 (Version None)
Quarter: 2010Q3

REPORT INFORMATION
  Report Type: 
  Country: None (occurrence: None)
  Receive Date: 20100706
  Receipt Date: 20100706
  Transmission Date: 20110219
  Serious: Yes (Hospitalization)
  Sender: FDA-Public Use
  Company Number: None

PATIENT
  Sex: Female
  Weight: 55 kg

DRUGS (2)
  1. REVLIMID [Suspect]
     Indication: ACUTE MYELOID LEUKAEMIA
     Dosage: 50 MG QD X 28 DAYS
     Dates: start: 20100618
  2. VIDAZA [Suspect]
     Dosage: 25 MG/M2 QD X 5 DAYS Q28 DAYS
     Dates: start: 20100618

REACTIONS (1)
  - POST PROCEDURAL HAEMORRHAGE [None]
